FAERS Safety Report 6829328-2 (Version None)
Quarter: 2010Q3

REPORT INFORMATION
  Report Type: 
  Country: None (occurrence: None)
  Receive Date: 20100709
  Receipt Date: 20070301
  Transmission Date: 20110219
  Serious: No
  Sender: FDA-Public Use
  Company Number: US-PFIZER INC-2007016815

PATIENT
  Sex: Female
  Weight: 90.72 kg

DRUGS (8)
  1. CHANTIX [Suspect]
     Indication: SMOKING CESSATION THERAPY
     Route: 048
     Dates: start: 20070126
  2. PROZAC [Concomitant]
  3. SEROQUEL [Concomitant]
  4. BUSPAR [Concomitant]
  5. OMEPRAZOLE [Concomitant]
  6. TRIAMTERENE [Concomitant]
  7. VALTREX [Concomitant]
  8. HYDROCODONE BITARTRATE [Concomitant]

REACTIONS (1)
  - HEADACHE [None]
